FAERS Safety Report 5995251-9 (Version None)
Quarter: 2008Q4

REPORT INFORMATION
  Report Type: 
  Country: None (occurrence: None)
  Receive Date: 20081212
  Receipt Date: 20080922
  Transmission Date: 20090506
  Serious: No
  Sender: FDA-Public Use
  Company Number: US-ABBOTT-08P-163-0477624-00

PATIENT
  Sex: Female
  Weight: 63.56 kg

DRUGS (4)
  1. HUMIRA [Suspect]
     Indication: RHEUMATOID ARTHRITIS
     Route: 050
     Dates: start: 20080801
  2. METFORMIN HCL [Concomitant]
     Indication: BLOOD GLUCOSE
     Route: 048
  3. HYDROMORPHONE HYDROCHLORIDE [Concomitant]
     Indication: PAIN
     Route: 048
  4. AMLODIPINE [Concomitant]
     Indication: BLOOD PRESSURE
     Route: 048

REACTIONS (2)
  - DRUG INEFFECTIVE [None]
  - PAIN [None]
